FAERS Safety Report 4966257-3 (Version None)
Quarter: 2006Q2

REPORT INFORMATION
  Report Type: 
  Country: None (occurrence: None)
  Receive Date: 20060407
  Receipt Date: 20051104
  Transmission Date: 20061013
  Serious: Yes (Hospitalization)
  Sender: FDA-Public Use
  Company Number: US-MERCK-0511USA01053

PATIENT
  Age: 33 Year
  Sex: Male

DRUGS (7)
  1. VIOXX [Suspect]
     Indication: ARTHRALGIA
     Route: 048
     Dates: start: 20030501, end: 20031001
  2. BEXTRA [Concomitant]
     Route: 065
     Dates: start: 20020901, end: 20041101
  3. NORVASC [Concomitant]
     Indication: CEREBROVASCULAR ACCIDENT
     Route: 065
     Dates: start: 20011101
  4. HYDROCODONE BITARTRATE [Concomitant]
     Route: 065
  5. NITROGLYCERIN [Concomitant]
     Indication: CHEST PAIN
     Route: 065
  6. SOMA [Concomitant]
     Indication: PAIN
     Route: 065
  7. PREDNISONE [Concomitant]
     Indication: ARTHRITIS
     Route: 065

REACTIONS (3)
  - ANXIETY [None]
  - BLOOD CHOLESTEROL INCREASED [None]
  - MYOCARDIAL INFARCTION [None]
